FAERS Safety Report 11338119 (Version 2)
Quarter: 2015Q3

REPORT INFORMATION
  Report Type: Spontaneous
  Country: US (occurrence: US)
  Receive Date: 20150803
  Receipt Date: 20150811
  Transmission Date: 20151125
  Serious: No
  Sender: FDA-Public Use
  Company Number: US-ELI_LILLY_AND_COMPANY-US201006007641

PATIENT
  Sex: Male

DRUGS (3)
  1. CIALIS [Suspect]
     Active Substance: TADALAFIL
     Indication: ERECTILE DYSFUNCTION
     Dosage: 20 MG, AS NEEDED
  2. ZYPREXA [Suspect]
     Active Substance: OLANZAPINE
     Dosage: 5 MG, UNK
  3. CIALIS [Suspect]
     Active Substance: TADALAFIL
     Dosage: 10 MG, UNK

REACTIONS (7)
  - Feeling abnormal [Recovered/Resolved]
  - Drug interaction [Recovered/Resolved]
  - Abnormal sensation in eye [Recovered/Resolved]
  - Dry eye [Recovered/Resolved]
  - Memory impairment [Recovered/Resolved]
  - Drug ineffective [Recovered/Resolved]
  - Eye pain [Recovered/Resolved]
